FAERS Safety Report 16134087 (Version 3)
Quarter: 2019Q3

REPORT INFORMATION
  Report Type: Report from Study
  Country: US (occurrence: US)
  Receive Date: 20190329
  Receipt Date: 20190723
  Transmission Date: 20191004
  Serious: Yes (Other)
  Sender: FDA-Public Use
  Company Number: US-ALEXION PHARMACEUTICALS INC.-A201904857

PATIENT
  Sex: Female

DRUGS (3)
  1. SOLIRIS [Suspect]
     Active Substance: ECULIZUMAB
     Indication: PRODUCT USED FOR UNKNOWN INDICATION
     Dosage: 1200 MG, Q2W
     Route: 065
  2. SOLIRIS [Suspect]
     Active Substance: ECULIZUMAB
     Dosage: 1200 MG, Q4W
     Route: 065
     Dates: end: 20190703
  3. SOLIRIS [Suspect]
     Active Substance: ECULIZUMAB
     Dosage: 1200 MG, Q3W
     Route: 065

REACTIONS (1)
  - Haptoglobin decreased [Unknown]
